FAERS Safety Report 8223323-7 (Version None)
Quarter: 2012Q1

REPORT INFORMATION
  Report Type: 
  Country: None (occurrence: None)
  Receive Date: 20120321
  Receipt Date: 20120127
  Transmission Date: 20120608
  Serious: Yes (Hospitalization)
  Sender: FDA-Public Use
  Company Number: US-ROCHE-GNE318960

PATIENT
  Sex: Female
  Weight: 70.37 kg

DRUGS (9)
  1. ADVAIR DISKUS 100/50 [Concomitant]
     Indication: ASTHMA
     Dosage: UNK
  2. PERCOCET [Concomitant]
     Indication: PAIN
     Dosage: 4-6 HOURS
     Route: 048
     Dates: start: 20111212
  3. VITAMIN AND MINERAL PRENATAL SUPPLEMENT W/ FOLIC ACID CAP [Concomitant]
     Indication: PREGNANCY
     Dosage: UNK
  4. PROAIR HFA [Concomitant]
     Indication: ASTHMA
     Dosage: UNK
  5. VENTOLIN DS [Concomitant]
     Indication: ASTHMA
  6. MOTRIN [Concomitant]
     Indication: PAIN
     Dosage: 6-8 HOURS
     Route: 048
  7. PENICILLIN G [Concomitant]
     Indication: STREPTOCOCCAL INFECTION
     Dates: start: 20111212, end: 20111212
  8. OMALIZUMAB [Suspect]
     Indication: ASTHMA
     Dosage: 150 MG, Q4W
     Route: 058
     Dates: start: 20090831
  9. STADOL [Concomitant]
     Indication: LABOUR PAIN
     Route: 042
     Dates: start: 20111212, end: 20111212

REACTIONS (6)
  - STREPTOCOCCUS TEST POSITIVE [None]
  - BLOOD PRESSURE INCREASED [None]
  - NORMAL NEWBORN [None]
  - PREMATURE SEPARATION OF PLACENTA [None]
  - MATERNAL EXPOSURE DURING PREGNANCY [None]
  - CAESAREAN SECTION [None]
